FAERS Safety Report 6102532-7 (Version None)
Quarter: 2009Q1

REPORT INFORMATION
  Report Type: 
  Country: None (occurrence: None)
  Receive Date: 20090304
  Receipt Date: 20080902
  Transmission Date: 20090719
  Serious: No
  Sender: FDA-Public Use
  Company Number: A0740732A

PATIENT
  Age: 72 Year
  Sex: Female

DRUGS (2)
  1. REQUIP [Suspect]
     Indication: RESTLESS LEGS SYNDROME
     Dosage: 1MG AS REQUIRED
     Route: 048
     Dates: start: 20080717
  2. UNKNOWN [Concomitant]

REACTIONS (6)
  - DRUG ADMINISTRATION ERROR [None]
  - DRUG INEFFECTIVE [None]
  - FATIGUE [None]
  - RESTLESS LEGS SYNDROME [None]
  - SOMNOLENCE [None]
  - TERMINAL INSOMNIA [None]
